FAERS Safety Report 9236680 (Version 1)
Quarter: 2013Q2

REPORT INFORMATION
  Report Type: Spontaneous
  Country: US (occurrence: US)
  Receive Date: 20130417
  Receipt Date: 20130417
  Transmission Date: 20140414
  Serious: Yes (Life-Threatening, Hospitalization, Disabling, Other)
  Sender: FDA-Public Use
  Company Number: US-GLAXOSMITHKLINE-A0861999A

PATIENT
  Age: 17 Year
  Sex: Male
  Weight: 45.9 kg

DRUGS (2)
  1. LAMICTAL [Suspect]
     Indication: AFFECTIVE DISORDER
     Dosage: 50MG PER DAY
     Route: 048
     Dates: start: 20100418, end: 201005
  2. NO CONCURRENT MEDICATION [Concomitant]

REACTIONS (10)
  - Stevens-Johnson syndrome [Recovering/Resolving]
  - Toxic epidermal necrolysis [Unknown]
  - Rash [Unknown]
  - Rash generalised [Unknown]
  - Decreased appetite [Unknown]
  - Ill-defined disorder [Unknown]
  - Malaise [Unknown]
  - Weight decreased [Unknown]
  - Skin exfoliation [Unknown]
  - Throat tightness [Unknown]
